FAERS Safety Report 8818456 (Version 1)
Quarter: 2012Q4

REPORT INFORMATION
  Report Type: 
  Country: US (occurrence: US)
  Receive Date: 20121001
  Receipt Date: 20121001
  Transmission Date: 20130627
  Serious: Yes (Other)
  Sender: FDA-Public Use
  Company Number: US-ELI_LILLY_AND_COMPANY-US201209006219

PATIENT
  Sex: Female

DRUGS (1)
  1. FORTEO [Suspect]
     Indication: OSTEOPOROSIS
     Dosage: 20 ug, qd
     Dates: start: 201205

REACTIONS (16)
  - Pleural effusion [Unknown]
  - Cardiac failure congestive [Unknown]
  - Feeling abnormal [Unknown]
  - Pain in extremity [Unknown]
  - Bone pain [Unknown]
  - Back pain [Unknown]
  - Arthralgia [Unknown]
  - Bunion [Unknown]
  - Pain in extremity [Unknown]
  - Muscle spasms [Unknown]
  - Sinusitis [Unknown]
  - Dyspnoea [Unknown]
  - Abdominal distension [Unknown]
  - Nocturia [Unknown]
  - Asthenia [Unknown]
  - Mobility decreased [Unknown]
